FAERS Safety Report 8849559 (Version 1)
Quarter: 2012Q4

REPORT INFORMATION
  Report Type: Spontaneous
  Country: US (occurrence: None)
  Receive Date: 20121018
  Receipt Date: 20121018
  Transmission Date: 20130627
  Serious: Yes (Disabling)
  Sender: FDA-Public Use
  Company Number: None

PATIENT
  Age: 47 Year
  Sex: Male
  Weight: 86.18 kg

DRUGS (1)
  1. Z-PAK [Suspect]
     Indication: BRONCHITIS
     Dosage: 250mg 1 a day po
     Route: 048
     Dates: start: 20120404, end: 20120504

REACTIONS (3)
  - Neuropathy peripheral [None]
  - Musculoskeletal pain [None]
  - Muscle tightness [None]
